FAERS Safety Report 23069227 (Version 1)
Quarter: 2023Q4

REPORT INFORMATION
  Report Type: Spontaneous
  Country: US (occurrence: US)
  Receive Date: 20231016
  Receipt Date: 20231016
  Transmission Date: 20240109
  Serious: Yes (Other)
  Sender: FDA-Public Use
  Company Number: US-Aprecia Pharmaceuticals-APRE20230315

PATIENT
  Age: 33 Year
  Sex: Female

DRUGS (1)
  1. SPRITAM [Suspect]
     Active Substance: LEVETIRACETAM
     Indication: Seizure
     Dosage: 2 TABLETS
     Route: 048
     Dates: end: 20230926

REACTIONS (2)
  - Drug withdrawal convulsions [Unknown]
  - Product dose omission issue [None]

NARRATIVE: CASE EVENT DATE: 20230926
